FAERS Safety Report 5804148-6 (Version None)
Quarter: 2008Q3

REPORT INFORMATION
  Report Type: 
  Country: None (occurrence: None)
  Receive Date: 20080707
  Receipt Date: 20080707
  Transmission Date: 20090109
  Serious: Yes (Other)
  Sender: FDA-Public Use
  Company Number: None

PATIENT
  Sex: Female
  Weight: 77.3 kg

DRUGS (15)
  1. TYGACIL [Suspect]
     Indication: ARTHRITIS BACTERIAL
     Dosage: 50MG EVERY 12 HOURS IV BOLUS
     Route: 040
     Dates: start: 20080703, end: 20080703
  2. LEVAQUIN [Concomitant]
  3. OMEPRAZOLE [Concomitant]
  4. RIFAMPIN [Concomitant]
  5. LEXAPRO [Concomitant]
  6. FOLIC ACID [Concomitant]
  7. COLACE [Concomitant]
  8. ULTRAM [Concomitant]
  9. ALBUTEROL [Concomitant]
  10. RESTORIL [Concomitant]
  11. DULCOLAX [Concomitant]
  12. MILK OF MAGNESIA SUSP [Concomitant]
  13. CIPROFLOXACIN HCL [Concomitant]
  14. CLINDAMYCIN HCL [Concomitant]
  15. ASPIRIN [Concomitant]

REACTIONS (3)
  - DIARRHOEA [None]
  - NAUSEA [None]
  - VOMITING [None]
